FAERS Safety Report 20902479 (Version 1)
Quarter: 2022Q2

REPORT INFORMATION
  Report Type: Spontaneous
  Country: US (occurrence: None)
  Receive Date: 20220601
  Receipt Date: 20220601
  Transmission Date: 20220721
  Serious: Yes (Life-Threatening, Hospitalization, Disabling)
  Sender: FDA-Public Use
  Company Number: None

PATIENT
  Age: 64 Year
  Sex: Female
  Weight: 67.5 kg

DRUGS (8)
  1. VITAMIN B12 [Concomitant]
     Active Substance: CYANOCOBALAMIN
     Indication: Pain
     Dates: start: 20171001, end: 20210619
  2. GABAPENTIN [Suspect]
     Active Substance: GABAPENTIN
  3. LYRICA [Suspect]
     Active Substance: PREGABALIN
  4. VITAMIN C [Concomitant]
     Active Substance: ASCORBIC ACID
  5. MAGNESIUM [Concomitant]
     Active Substance: MAGNESIUM
  6. ZINC [Concomitant]
     Active Substance: ZINC
  7. BOOST NUTRIION DRINK [Concomitant]
  8. HERBAL REMEDY FOR INCONTINENCE [Concomitant]

REACTIONS (6)
  - Malaise [None]
  - Escherichia infection [None]
  - Gait disturbance [None]
  - Loss of personal independence in daily activities [None]
  - Incontinence [None]
  - Musculoskeletal disorder [None]

NARRATIVE: CASE EVENT DATE: 20171001
